FAERS Safety Report 7485726-8 (Version None)
Quarter: 2011Q2

REPORT INFORMATION
  Report Type: 
  Country: None (occurrence: None)
  Receive Date: 20110517
  Receipt Date: 20110509
  Transmission Date: 20111010
  Serious: Yes (Life-Threatening, Hospitalization)
  Sender: FDA-Public Use
  Company Number: JP-MERCK-1104USA03903

PATIENT
  Age: 82 Year
  Sex: Male
  Weight: 67 kg

DRUGS (21)
  1. AMARYL [Concomitant]
     Dosage: DAILY DOSAGE UNKNOWN
     Route: 048
     Dates: start: 20110412
  2. NELBIS [Concomitant]
     Route: 048
     Dates: start: 20110412
  3. ALLOPURINOL [Concomitant]
     Route: 048
     Dates: start: 20110412
  4. CLARITIN [Concomitant]
     Indication: URTICARIA CHRONIC
     Dosage: TABLETS
     Route: 048
     Dates: start: 20060326
  5. HUMALOG [Concomitant]
     Indication: DIABETES MELLITUS
     Dosage: DAILY DOSAGE UNKNOWN
     Route: 058
  6. MICARDIS [Concomitant]
     Route: 048
     Dates: start: 20110412
  7. LIPITOR [Concomitant]
     Indication: DYSLIPIDAEMIA
     Route: 048
     Dates: start: 20060428
  8. ACTOS [Concomitant]
     Indication: DIABETES MELLITUS
     Dosage: DAILY DOSAGE UNKNOWN
     Route: 048
     Dates: start: 20061027
  9. NELBIS [Concomitant]
     Indication: DIABETES MELLITUS
     Route: 048
     Dates: start: 20061027
  10. LIPITOR [Concomitant]
     Route: 048
     Dates: start: 20110412
  11. CLARITIN [Concomitant]
     Dosage: TABLETS
     Route: 048
     Dates: start: 20110412
  12. CONIEL [Concomitant]
     Route: 048
     Dates: start: 20110412
  13. AMARYL [Concomitant]
     Indication: DIABETES MELLITUS
     Dosage: DAILY DOSAGE UNKNOWN
     Route: 048
     Dates: start: 20110225
  14. MICARDIS [Concomitant]
     Indication: HYPERTENSION
     Route: 048
     Dates: start: 20110126
  15. CONIEL [Concomitant]
     Indication: HYPERTENSION
     Route: 048
     Dates: start: 20070314
  16. ACTOS [Concomitant]
     Dosage: DAILY DOSAGE UNKNOWN
     Route: 048
     Dates: start: 20110412
  17. JANUVIA [Suspect]
     Indication: DIABETES MELLITUS
     Route: 048
     Dates: start: 20110225, end: 20110329
  18. JANUVIA [Suspect]
     Route: 048
     Dates: start: 20110412
  19. ALLOPURINOL [Concomitant]
     Indication: HYPERURICAEMIA
     Route: 048
     Dates: start: 20060428
  20. LANSOPRAZOLE [Concomitant]
     Dosage: DIVIDED DOSE FREQUENCY UNKNOWN
     Route: 048
     Dates: start: 20110412
  21. LANTUS [Concomitant]
     Indication: DIABETES MELLITUS
     Dosage: DAILY DOSAGE UNKNOWN
     Route: 058

REACTIONS (3)
  - ILEUS [None]
  - PERITONITIS [None]
  - DUODENAL ULCER PERFORATION [None]
